FAERS Safety Report 11445019 (Version 7)
Quarter: 2016Q1

REPORT INFORMATION
  Report Type: Spontaneous
  Country: US (occurrence: US)
  Receive Date: 20150902
  Receipt Date: 20160311
  Transmission Date: 20160525
  Serious: No
  Sender: FDA-Public Use
  Company Number: US-VIIV HEALTHCARE LIMITED-US2015124645

PATIENT
  Age: 49 Year
  Sex: Female
  Weight: 112.2 kg

DRUGS (13)
  1. TRIUMEQ [Suspect]
     Active Substance: ABACAVIR SULFATE\DOLUTEGRAVIR SODIUM\LAMIVUDINE
     Indication: HIV INFECTION
     Dosage: 1 DF, QD
     Route: 048
     Dates: start: 20150722, end: 20150813
  2. METOPROLOL SUCCINATE ER [Concomitant]
     Active Substance: METOPROLOL SUCCINATE
  3. AMLODIPINE BESYLATE. [Concomitant]
     Active Substance: AMLODIPINE BESYLATE
  4. CALCIUM 600 + D [Concomitant]
     Active Substance: CALCIUM\VITAMIN D
  5. ATORVASTATIN CALCIUM. [Concomitant]
     Active Substance: ATORVASTATIN CALCIUM
  6. HYDROCHLOROTHIAZIDE. [Concomitant]
     Active Substance: HYDROCHLOROTHIAZIDE
  7. LISINOPRIL. [Concomitant]
     Active Substance: LISINOPRIL
  8. LOPID [Concomitant]
     Active Substance: GEMFIBROZIL
  9. GEMFIBROZIL. [Concomitant]
     Active Substance: GEMFIBROZIL
  10. PROAIR HFA [Concomitant]
     Active Substance: ALBUTEROL SULFATE
  11. FLAGYL [Concomitant]
     Active Substance: METRONIDAZOLE\METRONIDAZOLE HYDROCHLORIDE
  12. LEVAQUIN [Concomitant]
     Active Substance: LEVOFLOXACIN
  13. KLOR-CON M20 [Concomitant]
     Active Substance: POTASSIUM CHLORIDE

REACTIONS (14)
  - Headache [Unknown]
  - Lumbar puncture [Unknown]
  - Memory impairment [Unknown]
  - Intentional product use issue [Unknown]
  - Dizziness [Unknown]
  - Pharyngitis [Unknown]
  - Oropharyngeal pain [Unknown]
  - Mental disorder [Not Recovered/Not Resolved]
  - Lymphadenopathy [Unknown]
  - Nausea [Unknown]
  - Pain [Unknown]
  - Pharyngeal erythema [Unknown]
  - Adverse event [Unknown]
  - Insomnia [Unknown]

NARRATIVE: CASE EVENT DATE: 201507
